FAERS Safety Report 25806361 (Version 2)
Quarter: 2025Q4

REPORT INFORMATION
  Report Type: Spontaneous
  Country: EU (occurrence: EU)
  Receive Date: 20250916
  Receipt Date: 20251102
  Transmission Date: 20260119
  Serious: Yes (Hospitalization, Other)
  Sender: SANOFI AVENTIS
  Company Number: None

PATIENT
  Sex: Male

DRUGS (17)
  1. OXALIPLATIN [Suspect]
     Active Substance: OXALIPLATIN
     Indication: Metastatic neoplasm
     Dosage: UNK UNK, QCY
     Dates: start: 201703
  2. OXALIPLATIN [Suspect]
     Active Substance: OXALIPLATIN
     Indication: Rectal adenocarcinoma
  3. CAPECITABINE [Suspect]
     Active Substance: CAPECITABINE
     Indication: Rectal adenocarcinoma
     Dosage: 1500 MG, BID (3-0-31500 MG /2 X PER DAY STRENGTH: 500 MG)
     Route: 048
     Dates: start: 201703
  4. ZALTRAP [Suspect]
     Active Substance: ZIV-AFLIBERCEPT
     Indication: Metastases to lung
     Dosage: UNK
     Dates: start: 201712
  5. ZALTRAP [Suspect]
     Active Substance: ZIV-AFLIBERCEPT
     Indication: Rectal adenocarcinoma
  6. FLUOROURACIL [Suspect]
     Active Substance: FLUOROURACIL
     Indication: Rectal adenocarcinoma
     Dosage: UNK UNK, QCY
     Dates: start: 201712
  7. IRINOTECAN [Suspect]
     Active Substance: IRINOTECAN
     Indication: Metastases to lung
     Dosage: UNK UNK, QCY
     Dates: start: 201712
  8. IRINOTECAN [Suspect]
     Active Substance: IRINOTECAN
     Indication: Rectal adenocarcinoma
  9. AVASTIN [Suspect]
     Active Substance: BEVACIZUMAB
     Indication: Metastatic neoplasm
     Dosage: UNK
     Dates: start: 201703
  10. AVASTIN [Suspect]
     Active Substance: BEVACIZUMAB
     Indication: Rectal adenocarcinoma
  11. LEUCOVORIN [Suspect]
     Active Substance: LEUCOVORIN\LEUCOVORIN CALCIUM
     Indication: Metastases to lung
     Dosage: UNK UNK, QCY
     Dates: start: 201712
  12. LEUCOVORIN [Suspect]
     Active Substance: LEUCOVORIN\LEUCOVORIN CALCIUM
     Indication: Rectal adenocarcinoma
  13. LONSURF [Suspect]
     Active Substance: TIPIRACIL HYDROCHLORIDE\TRIFLURIDINE
     Indication: Rectal adenocarcinoma
     Dosage: 20 MG TBS 3-0-3
     Dates: start: 201804
  14. TRIFLURIDINE [Suspect]
     Active Substance: TRIFLURIDINE
     Indication: Metastases to lung
     Dosage: 60 MG, BID (STRENGTH: 20 MG 3-0-3)
     Dates: start: 201804
  15. TRIFLURIDINE [Suspect]
     Active Substance: TRIFLURIDINE
     Indication: Rectal adenocarcinoma
  16. XELODA [Suspect]
     Active Substance: CAPECITABINE
     Indication: Metastatic neoplasm
     Dosage: UNK (500 MG TABS 3-0-4)
  17. XELODA [Suspect]
     Active Substance: CAPECITABINE
     Dosage: REDUCED TO 3-0-3

REACTIONS (18)
  - Gastrointestinal toxicity [Unknown]
  - Defaecation urgency [Unknown]
  - Dyspepsia [Unknown]
  - Diarrhoea [Unknown]
  - Weight decreased [Unknown]
  - Anal fistula [Unknown]
  - Haematotoxicity [Unknown]
  - Leukopenia [Unknown]
  - Neutropenia [Unknown]
  - Skin toxicity [Unknown]
  - Palmar-plantar erythrodysaesthesia syndrome [Unknown]
  - Mucosal inflammation [Unknown]
  - Pelvic abscess [Recovered/Resolved]
  - Perineal abscess [Recovered/Resolved]
  - Hypertension [Recovered/Resolved]
  - Peritonsillar abscess [Recovered/Resolved]
  - Pyrexia [Recovered/Resolved]
  - Condition aggravated [Recovered/Resolved]

NARRATIVE: CASE EVENT DATE: 20160101
